FAERS Safety Report 20091885 (Version 2)
Quarter: 2021Q4

REPORT INFORMATION
  Report Type: Spontaneous
  Country: US (occurrence: US)
  Receive Date: 20211119
  Receipt Date: 20211216
  Transmission Date: 20220303
  Serious: No
  Sender: FDA-Public Use
  Company Number: US-GE HEALTHCARE-2021CSU004766

PATIENT
  Age: 50 Year
  Sex: Male
  Weight: 97.506 kg

DRUGS (2)
  1. OMNIPAQUE [Suspect]
     Active Substance: IOHEXOL
     Indication: Computerised tomogram abdomen
     Dosage: 100ML AT THE RATE OF 2 ML/SEC, ONCE
     Route: 042
     Dates: start: 20210920, end: 20210920
  2. OMNIPAQUE [Suspect]
     Active Substance: IOHEXOL
     Indication: Umbilical hernia

REACTIONS (1)
  - Hypersensitivity [Recovered/Resolved]

NARRATIVE: CASE EVENT DATE: 20210920
